FAERS Safety Report 17414142 (Version 1)
Quarter: 2020Q1

REPORT INFORMATION
  Report Type: Spontaneous
  Country: US (occurrence: US)
  Receive Date: 20200213
  Receipt Date: 20200213
  Transmission Date: 20200409
  Serious: Yes (Hospitalization)
  Sender: FDA-Public Use
  Company Number: US-MYLANLABS-2020M1017147

PATIENT
  Age: 10 Year
  Sex: Male

DRUGS (5)
  1. MORPHINE [Suspect]
     Active Substance: MORPHINE
     Indication: PRIAPISM
     Dosage: UNK
     Route: 065
  2. TERBUTALINE [Suspect]
     Active Substance: TERBUTALINE
     Indication: PRIAPISM
     Route: 065
  3. ACETAMINOPHEN. [Suspect]
     Active Substance: ACETAMINOPHEN
     Indication: PRIAPISM
     Route: 065
  4. IBUPROFEN. [Suspect]
     Active Substance: IBUPROFEN
     Indication: PRIAPISM
     Route: 065
  5. SILDENAFIL. [Suspect]
     Active Substance: SILDENAFIL
     Indication: PRIAPISM
     Dosage: UNK
     Route: 065

REACTIONS (1)
  - Drug ineffective [Unknown]
